FAERS Safety Report 7525876-0 (Version None)
Quarter: 2011Q2

REPORT INFORMATION
  Report Type: 
  Country: None (occurrence: None)
  Receive Date: 20110606
  Receipt Date: 20110520
  Transmission Date: 20111010
  Serious: Yes (Congenital Anomaly)
  Sender: FDA-Public Use
  Company Number: A0930128A

PATIENT
  Sex: Female

DRUGS (1)
  1. PAXIL [Suspect]
     Route: 064

REACTIONS (5)
  - VENTRICULAR SEPTAL DEFECT [None]
  - ATRIAL SEPTAL DEFECT [None]
  - PATENT DUCTUS ARTERIOSUS [None]
  - DRUG EXPOSURE DURING PREGNANCY [None]
  - CARDIAC MURMUR [None]
